FAERS Safety Report 25905029 (Version 2)
Quarter: 2025Q4

REPORT INFORMATION
  Report Type: Spontaneous
  Country: US (occurrence: US)
  Receive Date: 20251010
  Receipt Date: 20251015
  Transmission Date: 20260118
  Serious: No
  Sender: ABBVIE
  Company Number: US-ABBVIE-6493714

PATIENT
  Sex: Male

DRUGS (3)
  1. LINZESS [Suspect]
     Active Substance: LINACLOTIDE
     Indication: Constipation
     Route: 048
  2. MIRALAX [Suspect]
     Active Substance: POLYETHYLENE GLYCOL 3350
     Indication: Constipation
     Route: 065
  3. CALCIUM CITRATE\MAGNESIUM CITRATE [Suspect]
     Active Substance: CALCIUM CITRATE\MAGNESIUM CITRATE
     Indication: Constipation
     Route: 065

REACTIONS (5)
  - Cold sweat [Unknown]
  - Hyperhidrosis [Unknown]
  - Hot flush [Unknown]
  - Tic [Unknown]
  - Abnormal faeces [Unknown]
